FAERS Safety Report 5894291-8 (Version None)
Quarter: 2008Q3

REPORT INFORMATION
  Report Type: 
  Country: None (occurrence: None)
  Receive Date: 20080923
  Receipt Date: 20080414
  Transmission Date: 20090109
  Serious: No
  Sender: FDA-Public Use
  Company Number: US-ASTRAZENECA-2008UW07620

PATIENT
  Sex: Male

DRUGS (3)
  1. SEROQUEL [Suspect]
     Indication: BIPOLAR DISORDER
     Route: 048
  2. TRAZODONE HCL [Interacting]
     Indication: BIPOLAR DISORDER
  3. ABILIFY [Interacting]
     Indication: BIPOLAR DISORDER

REACTIONS (4)
  - ANXIETY [None]
  - DRUG INTERACTION [None]
  - NEGATIVE THOUGHTS [None]
  - NERVOUSNESS [None]
